FAERS Safety Report 23621679 (Version 1)
Quarter: 2024Q1

REPORT INFORMATION
  Report Type: Spontaneous
  Country: ES (occurrence: ES)
  Receive Date: 20240312
  Receipt Date: 20240312
  Transmission Date: 20240410
  Serious: Yes (Other)
  Sender: FDA-Public Use
  Company Number: None

PATIENT
  Age: 71 Year
  Sex: Female

DRUGS (6)
  1. DAPTOMYCIN [Suspect]
     Active Substance: DAPTOMYCIN
     Indication: Bacterial abdominal infection
     Route: 042
     Dates: start: 20240123, end: 20240129
  2. DEPRAX 100 MG COMPRIMIDOS RECUBIERTOS CON PELICULA EFG [Concomitant]
     Indication: Product used for unknown indication
     Route: 048
     Dates: start: 20230914
  3. NOCTAMID 2 mg COMPRIMIDOS, 20 comprimidos [Concomitant]
     Indication: Product used for unknown indication
     Route: 048
     Dates: start: 20221219
  4. PAROXETINA NORMON 20 mg COMPRIMIDOS RECUBIERTOS CON PELICULA EFG [Concomitant]
     Indication: Product used for unknown indication
     Route: 048
     Dates: start: 20120706
  5. OMEPRAZOL STADA 20 mg CAPSULAS DURAS GASTRORRESISTENTES EFG [Concomitant]
     Indication: Product used for unknown indication
     Route: 048
     Dates: start: 20231108
  6. PIPERACILLIN SODIUM\TAZOBACTAM SODIUM [Concomitant]
     Active Substance: PIPERACILLIN SODIUM\TAZOBACTAM SODIUM
     Indication: Product used for unknown indication
     Route: 042
     Dates: start: 20240119

REACTIONS (2)
  - Blood creatine phosphokinase increased [Recovered/Resolved]
  - Myalgia [Recovering/Resolving]

NARRATIVE: CASE EVENT DATE: 20240129
